FAERS Safety Report 5505621-0 (Version None)
Quarter: 2007Q4

REPORT INFORMATION
  Report Type: 
  Country: None (occurrence: None)
  Receive Date: 20071102
  Receipt Date: 20071022
  Transmission Date: 20080405
  Serious: Yes (Hospitalization)
  Sender: FDA-Public Use
  Company Number: US-GENENTECH-248962

PATIENT
  Age: 72 Year
  Sex: Male

DRUGS (6)
  1. BEVACIZUMAB [Suspect]
     Indication: DRUG USE FOR UNKNOWN INDICATION
     Dosage: 280 MG/M2, Q2W
     Route: 042
     Dates: start: 20070730
  2. OXALIPLATIN [Suspect]
     Indication: DRUG USE FOR UNKNOWN INDICATION
     Dosage: 140 MG/M2, UNK
     Route: 042
     Dates: start: 20070730
  3. S-1 (TS-1) (TEGAFUR, GIMERACIL, OTERACIL POTA [Suspect]
     Indication: DRUG USE FOR UNKNOWN INDICATION
     Route: 048
     Dates: start: 20070716
  4. LACTULOSE [Concomitant]
     Indication: CONSTIPATION
  5. COLACE [Concomitant]
     Indication: CONSTIPATION
  6. MS CONTIN [Concomitant]
     Indication: PAIN

REACTIONS (2)
  - ASCITES [None]
  - DISEASE PROGRESSION [None]
